FAERS Safety Report 9374539 (Version 1)
Quarter: 2013Q2

REPORT INFORMATION
  Report Type: Spontaneous
  Country: GB (occurrence: GB)
  Receive Date: 20130628
  Receipt Date: 20130628
  Transmission Date: 20140414
  Serious: Yes (Other)
  Sender: FDA-Public Use
  Company Number: GB-ASTELLAS-2013EU005260

PATIENT
  Sex: Male

DRUGS (1)
  1. VESICARE [Suspect]
     Indication: PAIN
     Dosage: 5 MG, UNKNOWN/D
     Route: 065
     Dates: start: 201303

REACTIONS (2)
  - Off label use [Unknown]
  - Prostate cancer recurrent [Unknown]
